FAERS Safety Report 9400420 (Version 1)
Quarter: 2013Q3

REPORT INFORMATION
  Report Type: Spontaneous
  Country: US (occurrence: US)
  Receive Date: 20130715
  Receipt Date: 20130715
  Transmission Date: 20140515
  Serious: No
  Sender: FDA-Public Use
  Company Number: US-PFIZER INC-2013205715

PATIENT
  Age: 80 Year
  Sex: Male
  Weight: 82.54 kg

DRUGS (3)
  1. ADVIL [Suspect]
     Indication: ABDOMINAL PAIN UPPER
     Dosage: UNK, TWO TIMES A DAY
  2. ADVIL [Suspect]
     Dosage: UNK, TWO TIMES A DAY
     Dates: start: 20130710
  3. BUPROPION [Concomitant]
     Dosage: UNK, DAILY

REACTIONS (2)
  - Diarrhoea [Unknown]
  - Abnormal faeces [Unknown]
